FAERS Safety Report 11245287 (Version 2)
Quarter: 2015Q3

REPORT INFORMATION
  Report Type: Spontaneous
  Country: DE (occurrence: DE)
  Receive Date: 20150707
  Receipt Date: 20150803
  Transmission Date: 20151125
  Serious: Yes (Hospitalization, Other)
  Sender: FDA-Public Use
  Company Number: DE-009507513-1507DEU002315

PATIENT
  Sex: Male

DRUGS (8)
  1. JANUVIA [Suspect]
     Active Substance: SITAGLIPTIN PHOSPHATE
     Indication: DIABETES MELLITUS
     Dosage: UNK
     Route: 048
     Dates: end: 20150607
  2. PRAVASTATIN [Concomitant]
     Active Substance: PRAVASTATIN\PRAVASTATIN SODIUM
  3. FRAGMIN [Concomitant]
     Active Substance: DALTEPARIN SODIUM
  4. RAMIPRIL. [Concomitant]
     Active Substance: RAMIPRIL
  5. ASPIRIN. [Concomitant]
     Active Substance: ASPIRIN
  6. JANUVIA [Suspect]
     Active Substance: SITAGLIPTIN PHOSPHATE
     Dosage: 50 MG, FOUR TIMES A DAY ONE TABLET
     Route: 048
     Dates: start: 20150608, end: 20150703
  7. ENALAPRIL MALEATE. [Concomitant]
     Active Substance: ENALAPRIL MALEATE
  8. AMLODIPINE [Concomitant]
     Active Substance: AMLODIPINE BESYLATE

REACTIONS (2)
  - Cerebral infarction [Unknown]
  - Overdose [Unknown]

NARRATIVE: CASE EVENT DATE: 20150608
